FAERS Safety Report 6278872-8 (Version None)
Quarter: 2009Q3

REPORT INFORMATION
  Report Type: 
  Country: None (occurrence: None)
  Receive Date: 20090723
  Receipt Date: 20090714
  Transmission Date: 20100115
  Serious: Yes (Hospitalization)
  Sender: FDA-Public Use
  Company Number: US-BIOGENIDEC-2009BI022034

PATIENT
  Age: 53 Year
  Sex: Female

DRUGS (2)
  1. AVONEX [Suspect]
     Indication: MULTIPLE SCLEROSIS
     Route: 030
     Dates: start: 20031002, end: 20060101
  2. AVONEX [Suspect]
     Route: 030

REACTIONS (11)
  - ANKLE FRACTURE [None]
  - ASTHENIA [None]
  - BALANCE DISORDER [None]
  - DEPRESSION [None]
  - DRUG INEFFECTIVE [None]
  - EMOTIONAL DISORDER [None]
  - FALL [None]
  - HYPERTENSION [None]
  - RIB FRACTURE [None]
  - SPEECH DISORDER [None]
  - UPPER LIMB FRACTURE [None]
